FAERS Safety Report 13727601 (Version 5)
Quarter: 2017Q4

REPORT INFORMATION
  Report Type: Spontaneous
  Country: US (occurrence: US)
  Receive Date: 20170707
  Receipt Date: 20171123
  Transmission Date: 20180320
  Serious: No
  Sender: FDA-Public Use
  Company Number: US-PFIZER INC-2017291346

PATIENT
  Age: 51 Year
  Sex: Female

DRUGS (2)
  1. IBRANCE [Suspect]
     Active Substance: PALBOCICLIB
     Indication: BREAST CANCER METASTATIC
     Dosage: 100 MG, DAILY
     Route: 048
     Dates: start: 20150505
  2. IBRANCE [Suspect]
     Active Substance: PALBOCICLIB
     Indication: BONE CANCER
     Dosage: 100 MG, DAILY
     Route: 048
     Dates: start: 20170506

REACTIONS (3)
  - Nausea [Not Recovered/Not Resolved]
  - Fatigue [Unknown]
  - Vomiting [Unknown]

NARRATIVE: CASE EVENT DATE: 20170828
